FAERS Safety Report 9815925 (Version 1)
Quarter: 2014Q1

REPORT INFORMATION
  Report Type: Spontaneous
  Country: US (occurrence: US)
  Receive Date: 20140114
  Receipt Date: 20140114
  Transmission Date: 20141002
  Serious: Yes (Hospitalization)
  Sender: FDA-Public Use
  Company Number: US-ASTRAZENECA-2014SE01392

PATIENT
  Age: 50 Year
  Sex: Female
  Weight: 95.3 kg

DRUGS (8)
  1. NEXIUM [Suspect]
     Indication: GASTRITIS
     Route: 048
  2. LISINOPRIL [Suspect]
     Indication: PROTEIN URINE
     Dosage: DAILY
     Route: 048
     Dates: start: 2013
  3. PRILOSEC [Suspect]
     Indication: GASTRITIS
     Route: 048
  4. PRILOSEC [Suspect]
     Indication: GASTRITIS
     Route: 048
  5. HYDROCHLOROTHIAZIDE [Suspect]
     Indication: BLOOD PRESSURE ABNORMAL
     Dosage: DAILY
     Route: 048
     Dates: start: 2009
  6. LORATIDINE [Concomitant]
     Indication: SINUS HEADACHE
     Dosage: UNKNOWN PRN
     Route: 048
  7. DOXYCYCLINE [Concomitant]
     Indication: GASTRIC INFECTION
     Route: 048
     Dates: start: 2014
  8. BIAXIN [Concomitant]
     Indication: GASTRIC INFECTION
     Route: 048
     Dates: start: 2014

REACTIONS (8)
  - Pallor [Unknown]
  - Malaise [Unknown]
  - Vomiting [Unknown]
  - Gastric infection [Unknown]
  - Dyspepsia [Unknown]
  - Nausea [Unknown]
  - Drug ineffective [Unknown]
  - Intentional drug misuse [Unknown]
